FAERS Safety Report 4828293-7 (Version None)
Quarter: 2005Q4

REPORT INFORMATION
  Report Type: 
  Country: None (occurrence: None)
  Receive Date: 20051114
  Receipt Date: 20051114
  Transmission Date: 20060501
  Serious: Yes (Hospitalization)
  Sender: FDA-Public Use
  Company Number: None

PATIENT
  Sex: Male
  Weight: 63 kg

DRUGS (2)
  1. CETUXIMAB (400MG/M2) [Suspect]
     Indication: OESOPHAGEAL CARCINOMA
     Dosage: 400 LOADING IV
     Route: 042
     Dates: start: 20050927
  2. CETUXIMAB (250MD/M2) [Suspect]
     Indication: OESOPHAGEAL CARCINOMA
     Dosage: 250 WEEKLY IV
     Route: 042
     Dates: start: 20051004, end: 20051108

REACTIONS (7)
  - DISEASE PROGRESSION [None]
  - DRUG TOXICITY [None]
  - JAUNDICE [None]
  - MALIGNANT NEOPLASM PROGRESSION [None]
  - METASTASES TO SPINE [None]
  - OESOPHAGEAL CANCER METASTATIC [None]
  - PAIN [None]
